FAERS Safety Report 15863095 (Version 1)
Quarter: 2018Q4

REPORT INFORMATION
  Report Type: Spontaneous
  Country: US (occurrence: US)
  Receive Date: 20181228
  Receipt Date: 20181228
  Transmission Date: 20190205
  Serious: Yes (Other)
  Sender: FDA-Public Use
  Company Number: None

PATIENT
  Age: 50 Year
  Sex: Male
  Weight: 146 kg

DRUGS (1)
  1. TOPIRAMATE. [Suspect]
     Active Substance: TOPIRAMATE
     Indication: PAIN
     Route: 048
     Dates: start: 20160524, end: 20180725

REACTIONS (8)
  - Blood urea increased [None]
  - Flank pain [None]
  - Blood creatinine increased [None]
  - Hydronephrosis [None]
  - Haematuria [None]
  - Nephrolithiasis [None]
  - Nephritis [None]
  - Ureteric stenosis [None]

NARRATIVE: CASE EVENT DATE: 20181023
